FAERS Safety Report 9456300 (Version 3)
Quarter: 2014Q1

REPORT INFORMATION
  Report Type: Spontaneous
  Country: US (occurrence: US)
  Receive Date: 20130813
  Receipt Date: 20140321
  Transmission Date: 20141002
  Serious: Yes (Hospitalization)
  Sender: FDA-Public Use
  Company Number: US-GLAXOSMITHKLINE-A1037193A

PATIENT
  Age: 50 Year
  Sex: Male

DRUGS (10)
  1. VENTOLIN HFA [Suspect]
     Indication: BRONCHOSPASM
     Dosage: 2PUFF AS REQUIRED
     Route: 055
     Dates: start: 200911
  2. ADVAIR HFA [Suspect]
     Indication: CHRONIC OBSTRUCTIVE PULMONARY DISEASE
     Dosage: 1PUFF TWICE PER DAY
     Route: 055
     Dates: start: 200911
  3. LYRICA [Concomitant]
  4. FLEXERIL [Concomitant]
  5. MULTIVITAMIN [Concomitant]
  6. ASPIRIN [Concomitant]
  7. ATENOLOL [Concomitant]
  8. SPIRIVA [Concomitant]
  9. PROZAC [Concomitant]
  10. CYMBALTA [Concomitant]

REACTIONS (5)
  - Myocardial infarction [Unknown]
  - Chest pain [Unknown]
  - Emphysema [Unknown]
  - Chronic obstructive pulmonary disease [Unknown]
  - Drug administration error [Unknown]
